FAERS Safety Report 5404713-4 (Version None)
Quarter: 2007Q3

REPORT INFORMATION
  Report Type: 
  Country: None (occurrence: None)
  Receive Date: 20070801
  Receipt Date: 20070718
  Transmission Date: 20080115
  Serious: Yes (Hospitalization)
  Sender: FDA-Public Use
  Company Number: 016198

PATIENT
  Age: 65 Year
  Sex: Female

DRUGS (4)
  1. DIAMOX [Suspect]
     Dosage: INTRAVENOUS
     Route: 042
  2. DEXAMETHASONE TAB [Suspect]
     Dosage: TOPICAL
     Route: 061
  3. IOPIDINE(APRACLONIDINE) [Suspect]
  4. PILOCARPINE [Suspect]

REACTIONS (4)
  - BLINDNESS [None]
  - INTRAOCULAR PRESSURE DECREASED [None]
  - RETINAL HAEMORRHAGE [None]
  - RETINOPATHY [None]
